FAERS Safety Report 7315257-7 (Version None)
Quarter: 2011Q1

REPORT INFORMATION
  Report Type: 
  Country: None (occurrence: None)
  Receive Date: 20110218
  Receipt Date: 20110218
  Transmission Date: 20110831
  Serious: No
  Sender: FDA-Public Use
  Company Number: None

PATIENT
  Sex: Female

DRUGS (1)
  1. FENTANYL-100 [Suspect]
     Dates: start: 20110118, end: 20110201

REACTIONS (2)
  - PRODUCT SUBSTITUTION ISSUE [None]
  - APPLICATION SITE HAEMATOMA [None]
